FAERS Safety Report 7787079-4 (Version None)
Quarter: 2011Q3

REPORT INFORMATION
  Report Type: 
  Country: None (occurrence: None)
  Receive Date: 20110929
  Receipt Date: 20110921
  Transmission Date: 20111222
  Serious: Yes (Hospitalization)
  Sender: FDA-Public Use
  Company Number: US-B.I. PHARMACEUTICALS,INC./RIDGEFIELD-2011-BP-20650BP

PATIENT
  Sex: Female
  Weight: 95 kg

DRUGS (6)
  1. TRAZODONE HYDROCHLORIDE [Concomitant]
     Indication: SLEEP DISORDER
  2. SYNTHROID [Concomitant]
     Indication: HYPOTHYROIDISM
     Dosage: 0.5 MG
     Dates: start: 20071128
  3. MIRAPEX [Suspect]
     Indication: RESTLESS LEGS SYNDROME
     Dosage: 0.25 MG
     Dates: start: 20071201
  4. MIRAPEX [Suspect]
     Dosage: 1.5 MG
     Dates: end: 20110601
  5. WELLBUTRIN [Concomitant]
     Indication: DEPRESSION
     Dosage: 300 MG
  6. TUSSIGON [Concomitant]
     Indication: RESTLESS LEGS SYNDROME
     Dosage: 15 MG

REACTIONS (6)
  - ATTENTION DEFICIT/HYPERACTIVITY DISORDER [None]
  - ANXIETY [None]
  - PATHOLOGICAL GAMBLING [None]
  - DEPRESSION [None]
  - PAIN [None]
  - SUICIDAL IDEATION [None]
